FAERS Safety Report 19354617 (Version 3)
Quarter: 2022Q1

REPORT INFORMATION
  Report Type: Spontaneous
  Country: JP (occurrence: JP)
  Receive Date: 20210602
  Receipt Date: 20220318
  Transmission Date: 20220423
  Serious: Yes (Death, Life-Threatening, Other)
  Sender: FDA-Public Use
  Company Number: JP-TAKEDA-2021TJP031369

PATIENT
  Age: 69 Year
  Sex: Male
  Weight: 70 kg

DRUGS (15)
  1. NINLARO [Suspect]
     Active Substance: IXAZOMIB CITRATE
     Indication: Plasma cell myeloma
     Dosage: UNK
     Route: 048
  2. NINLARO [Suspect]
     Active Substance: IXAZOMIB CITRATE
     Dosage: 2.3 MILLIGRAM
     Route: 048
     Dates: start: 20210416
  3. REVLIMID [Suspect]
     Active Substance: LENALIDOMIDE
     Indication: Product used for unknown indication
     Dosage: 15 MILLIGRAM
     Route: 065
     Dates: start: 20210416
  4. LENADEX [Suspect]
     Active Substance: DEXAMETHASONE ACETATE
     Indication: Product used for unknown indication
     Dosage: 8 MILLIGRAM
     Route: 065
     Dates: start: 20210416
  5. VONOPRAZAN FUMARATE [Concomitant]
     Active Substance: VONOPRAZAN FUMARATE
     Dosage: 20 MILLIGRAM, QD
     Route: 065
     Dates: start: 20210415
  6. PREDNISOLONE [Concomitant]
     Active Substance: PREDNISOLONE
     Dosage: 7.5 MILLIGRAM, QD
     Route: 065
     Dates: start: 20210415
  7. EMPAGLIFLOZIN\LINAGLIPTIN [Concomitant]
     Active Substance: EMPAGLIFLOZIN\LINAGLIPTIN
     Dosage: 1 DOSAGE FORM, QD
     Route: 065
     Dates: start: 20210422
  8. ACTOS [Concomitant]
     Active Substance: PIOGLITAZONE HYDROCHLORIDE
     Dosage: 15 MILLIGRAM, QD
     Route: 065
     Dates: start: 20210422
  9. BIO-THREE [Concomitant]
     Active Substance: HERBALS
     Dosage: 1 DOSAGE FORM, BID
     Route: 065
     Dates: start: 20210415
  10. DIMETHICONE [Concomitant]
     Active Substance: DIMETHICONE
     Dosage: 40 MILLIGRAM, BID
     Route: 065
     Dates: start: 20210415
  11. REBAMIPIDE [Concomitant]
     Active Substance: REBAMIPIDE
     Dosage: 100 MILLIGRAM, BID
     Route: 065
     Dates: start: 20210415
  12. ALESION [Concomitant]
     Active Substance: EPINASTINE HYDROCHLORIDE
     Dosage: 20 MILLIGRAM, QD
     Route: 065
     Dates: start: 20210415
  13. ACYCLOVIR [Concomitant]
     Active Substance: ACYCLOVIR
     Dosage: 200 MILLIGRAM, QD
     Route: 065
     Dates: start: 20210415
  14. HYALURONATE SODIUM [Concomitant]
     Active Substance: HYALURONATE SODIUM
     Dosage: UNK UNK, TID
     Route: 065
     Dates: start: 20210415
  15. PIRENOXINE [Concomitant]
     Active Substance: PIRENOXINE
     Dosage: UNK
     Route: 065
     Dates: start: 20210415

REACTIONS (11)
  - Pneumonia pneumococcal [Fatal]
  - Neutropenia [Recovered/Resolved]
  - Platelet count decreased [Unknown]
  - Splenomegaly [Unknown]
  - Hepatic steatosis [Unknown]
  - Hepatic cyst [Unknown]
  - Cholelithiasis [Unknown]
  - Renal cyst [Unknown]
  - Bladder diverticulum [Unknown]
  - Diverticulum intestinal [Unknown]
  - Scan abnormal [Unknown]

NARRATIVE: CASE EVENT DATE: 20180918
